FAERS Safety Report 11079075 (Version 1)
Quarter: 2015Q2

REPORT INFORMATION
  Report Type: Spontaneous
  Country: US (occurrence: US)
  Receive Date: 20150430
  Receipt Date: 20150430
  Transmission Date: 20150821
  Serious: Yes (Other)
  Sender: FDA-Public Use
  Company Number: US-BAYER-2015-180043

PATIENT
  Age: 12 Year
  Sex: Female

DRUGS (3)
  1. BEYAZ [Suspect]
     Active Substance: DROSPIRENONE\ETHINYL ESTRADIOL\LEVOMEFOLATE CALCIUM
     Indication: OVARIAN CYST
     Dosage: UNK
     Route: 048
     Dates: start: 2013, end: 2013
  2. SAFYRAL [Suspect]
     Active Substance: DROSPIRENONE\ETHINYL ESTRADIOL\LEVOMEFOLATE CALCIUM
     Indication: GENITAL HAEMORRHAGE
     Dosage: DOUBLE DOSE
     Route: 048
  3. SAFYRAL [Suspect]
     Active Substance: DROSPIRENONE\ETHINYL ESTRADIOL\LEVOMEFOLATE CALCIUM
     Indication: ABDOMINAL PAIN

REACTIONS (4)
  - Off label use [None]
  - Abdominal pain [None]
  - Product use issue [Recovered/Resolved]
  - Metrorrhagia [None]

NARRATIVE: CASE EVENT DATE: 2013
